FAERS Safety Report 4393170-5 (Version None)
Quarter: 2004Q3

REPORT INFORMATION
  Report Type: 
  Country: None (occurrence: None)
  Receive Date: 20040708
  Receipt Date: 20040628
  Transmission Date: 20050211
  Serious: Yes (Hospitalization)
  Sender: FDA-Public Use
  Company Number: PHRM2004FR02250

PATIENT
  Age: 74 Year
  Sex: Male
  Weight: 74 kg

DRUGS (8)
  1. TEGRETOL [Suspect]
     Indication: EPILEPSY
     Dosage: 200 MG, TID
     Route: 048
     Dates: start: 19950115
  2. HYTACAND [Suspect]
     Indication: HYPERTENSION
     Dosage: 1 DF, QD
     Route: 048
     Dates: start: 20040315, end: 20040420
  3. PAROXETINE HCL [Suspect]
     Indication: DEPRESSION
     Dosage: 20 MG, QD
     Route: 048
     Dates: start: 20040315
  4. CORVASAL [Concomitant]
     Indication: ANGINA PECTORIS
     Dosage: 2 MG, TID
     Dates: start: 20040315
  5. PLAVIX [Concomitant]
     Indication: PHLEBITIS
     Dosage: 75 MG, QD
     Route: 048
  6. BISOPROLOL FUMARATE [Concomitant]
     Indication: ANGINA PECTORIS
     Dosage: 10 MG, QD
     Route: 048
     Dates: start: 20040315
  7. ACTONEL [Concomitant]
     Indication: OSTEOPOROSIS
     Dosage: 35 MG, QW
     Route: 048
  8. CACIT D3 [Concomitant]
     Indication: OSTEOPOROSIS
     Dosage: 1 TAB/DAY
     Route: 048

REACTIONS (15)
  - AMNESIA [None]
  - BITE [None]
  - CHEST PAIN [None]
  - CONFUSIONAL STATE [None]
  - DRUG INTERACTION [None]
  - EPILEPSY [None]
  - FATIGUE [None]
  - HYPERGLYCAEMIA [None]
  - HYPERTENSION [None]
  - HYPOCHLORAEMIA [None]
  - HYPOKALAEMIA [None]
  - HYPONATRAEMIA [None]
  - LOSS OF CONSCIOUSNESS [None]
  - MALAISE [None]
  - NAUSEA [None]
